FAERS Safety Report 8374533 (Version 2)
Quarter: 2012Q4

REPORT INFORMATION
  Report Type: 
  Country: CA (occurrence: CA)
  Receive Date: 20120130
  Receipt Date: 20120907
  Transmission Date: 20130627
  Serious: Yes (Disabling)
  Sender: FDA-Public Use
  Company Number: CA-SHIRE-ALL1-2012-00401

PATIENT
  Age: 18 Year
  Sex: Male

DRUGS (1)
  1. VYVANSE [Suspect]
     Indication: PRODUCT USED FOR UNKNOWN INDICATION
     Dosage: 1 DF, 1x/day:qd
     Route: 048

REACTIONS (1)
  - Deafness [Recovered/Resolved]
